FAERS Safety Report 7283264-9 (Version None)
Quarter: 2011Q1

REPORT INFORMATION
  Report Type: 
  Country: None (occurrence: None)
  Receive Date: 20110209
  Receipt Date: 20110207
  Transmission Date: 20110831
  Serious: Yes (Life-Threatening, Hospitalization, Other)
  Sender: FDA-Public Use
  Company Number: PHHY2009GB11977

PATIENT
  Sex: Male

DRUGS (9)
  1. CITALOPRAM [Concomitant]
     Dosage: 20 MG, UNK
     Route: 048
  2. ESOMEPRAZOLE [Concomitant]
     Dosage: 40 MG, UNK
     Route: 048
  3. CLOZARIL [Suspect]
     Dosage: UNK
     Route: 048
     Dates: start: 20011218
  4. VALPROIC ACID [Concomitant]
     Dosage: 1000 MG, UNK
     Route: 048
  5. CLOZARIL [Suspect]
     Indication: SCHIZOPHRENIA
     Dosage: 400 MG, UNK
     Route: 048
     Dates: start: 20011218
  6. CLOZARIL [Suspect]
     Dosage: 200 MG, UNK
     Route: 048
     Dates: start: 20011218
  7. HYDROXYZINE [Concomitant]
     Dosage: 25 MG, UNK
     Route: 048
  8. FRUSEMIDE [Concomitant]
     Dosage: 250 MG, UNK
     Route: 048
  9. CLOZARIL [Suspect]
     Dosage: 100MG AM, 100 MG MIDDAY, 300MG PM

REACTIONS (15)
  - ANXIETY [None]
  - MALAISE [None]
  - NEUTROPENIA [None]
  - HAEMOGLOBIN DECREASED [None]
  - KIDNEY INFECTION [None]
  - HAEMATOCRIT DECREASED [None]
  - HYPERTENSION [None]
  - OVERDOSE [None]
  - MEAN CELL HAEMOGLOBIN INCREASED [None]
  - RENAL FAILURE CHRONIC [None]
  - GASTROOESOPHAGEAL REFLUX DISEASE [None]
  - RED BLOOD CELL COUNT DECREASED [None]
  - PNEUMONIA [None]
  - PAIN [None]
  - MENTAL DISORDER [None]
